FAERS Safety Report 5133687-9 (Version None)
Quarter: 2006Q4

REPORT INFORMATION
  Report Type: 
  Country: None (occurrence: None)
  Receive Date: 20061024
  Receipt Date: 20060807
  Transmission Date: 20070319
  Serious: No
  Sender: FDA-Public Use
  Company Number: US-AMGEN-KDL189128

PATIENT
  Sex: Female
  Weight: 62 kg

DRUGS (13)
  1. SENSIPAR [Suspect]
     Indication: HYPERPARATHYROIDISM SECONDARY
     Route: 048
     Dates: start: 20060803, end: 20060803
  2. LISINOPRIL [Concomitant]
     Route: 048
     Dates: start: 20060525
  3. PHOSLO [Concomitant]
     Route: 048
     Dates: start: 20060415
  4. TOPROL-XL [Concomitant]
     Route: 048
     Dates: start: 20000313
  5. CRESTOR [Concomitant]
     Route: 048
     Dates: start: 20050525
  6. PEPCID [Concomitant]
     Dates: start: 20050318
  7. NASACORT [Concomitant]
     Dates: start: 20050703
  8. AMIODARONE HCL [Concomitant]
     Route: 048
     Dates: start: 20050219
  9. FOLIC ACID [Concomitant]
     Route: 048
     Dates: start: 20040915
  10. VICODIN [Concomitant]
     Dates: start: 20040915
  11. ASPIRIN [Concomitant]
     Route: 048
     Dates: start: 20040915
  12. SYNTHROID [Concomitant]
     Route: 048
     Dates: start: 20040915
  13. ZOLOFT [Concomitant]
     Route: 048
     Dates: start: 20040915

REACTIONS (5)
  - DIARRHOEA [None]
  - MALAISE [None]
  - NAUSEA [None]
  - VERTIGO [None]
  - VOMITING [None]
